FAERS Safety Report 6505614-0 (Version None)
Quarter: 2009Q4

REPORT INFORMATION
  Report Type: 
  Country: None (occurrence: None)
  Receive Date: 20091217
  Receipt Date: 20091217
  Transmission Date: 20100525
  Serious: Yes (Other)
  Sender: FDA-Public Use
  Company Number: None

PATIENT
  Age: 58 Year
  Sex: Female
  Weight: 76.2043 kg

DRUGS (2)
  1. CRESTOR [Suspect]
     Indication: BLOOD CHOLESTEROL INCREASED
     Dosage: 10MG ONCE A DAY PO
     Route: 048
     Dates: start: 20090101, end: 20090701
  2. VYTORIN [Suspect]
     Indication: BLOOD CHOLESTEROL INCREASED
     Dosage: 10MG ONCE A DAY PO PRESENT
     Route: 048
     Dates: start: 20090701, end: 20091219

REACTIONS (3)
  - ABASIA [None]
  - BLOOD CHOLESTEROL INCREASED [None]
  - ECONOMIC PROBLEM [None]
